FAERS Safety Report 4316934-2 (Version None)
Quarter: 2004Q1

REPORT INFORMATION
  Report Type: 
  Country: None (occurrence: None)
  Receive Date: 20040312
  Receipt Date: 20040302
  Transmission Date: 20041129
  Serious: Yes (Other)
  Sender: FDA-Public Use
  Company Number: US-JNJFOC-20040300768

PATIENT
  Age: 51 Year
  Sex: Female
  Weight: 133.3575 kg

DRUGS (4)
  1. REMICADE [Suspect]
     Indication: PSORIASIS
     Dosage: 10 MG/KG, INTRAVENOUS
     Route: 042
     Dates: start: 20010701
  2. REMICADE [Suspect]
     Indication: RHEUMATOID ARTHRITIS
     Dosage: 10 MG/KG, INTRAVENOUS
     Route: 042
     Dates: start: 20010701
  3. REMICADE [Suspect]
     Indication: PSORIASIS
     Dosage: 10 MG/KG, INTRAVENOUS
     Route: 042
     Dates: start: 20040120
  4. REMICADE [Suspect]
     Indication: RHEUMATOID ARTHRITIS
     Dosage: 10 MG/KG, INTRAVENOUS
     Route: 042
     Dates: start: 20040120

REACTIONS (1)
  - LYMPHOMA [None]
